FAERS Safety Report 25439662 (Version 2)
Quarter: 2025Q2

REPORT INFORMATION
  Report Type: Spontaneous
  Country: GB (occurrence: GB)
  Receive Date: 20250616
  Receipt Date: 20250624
  Transmission Date: 20250716
  Serious: Yes (Other)
  Sender: BOEHRINGER INGELHEIM
  Company Number: GB-Komodo Health-a23aa0000087sv7AAA

PATIENT
  Age: 71 Year
  Sex: Male
  Weight: 51.8 kg

DRUGS (2)
  1. OFEV [Suspect]
     Active Substance: NINTEDANIB
     Indication: Idiopathic pulmonary fibrosis
     Dates: start: 20240129, end: 20250617
  2. OMEPRAZOLE [Concomitant]
     Active Substance: OMEPRAZOLE

REACTIONS (4)
  - Idiopathic pulmonary fibrosis [Unknown]
  - Jaundice [Unknown]
  - Decreased appetite [Unknown]
  - Emphysema [Unknown]

NARRATIVE: CASE EVENT DATE: 20241217
